FAERS Safety Report 8883248 (Version 2)
Quarter: 2012Q4

REPORT INFORMATION
  Report Type: 
  Country: US (occurrence: US)
  Receive Date: 20121102
  Receipt Date: 20121206
  Transmission Date: 20130627
  Serious: Yes (Other)
  Sender: FDA-Public Use
  Company Number: CHPA2012US022599

PATIENT
  Age: 69 Year
  Sex: Female

DRUGS (3)
  1. GAS-X [Suspect]
     Indication: FLATULENCE
     Dosage: 1 DF, BID PRN
     Route: 048
     Dates: start: 2007
  2. L-THYROXINE [Concomitant]
     Dosage: UNK, UNK
     Dates: start: 2009
  3. VICODIN [Concomitant]
     Indication: PAIN
     Dosage: UNK, UNK
     Dates: start: 2006

REACTIONS (6)
  - Nasal disorder [Recovered/Resolved]
  - Coeliac disease [Not Recovered/Not Resolved]
  - Concomitant disease aggravated [Not Recovered/Not Resolved]
  - Flatulence [Not Recovered/Not Resolved]
  - Condition aggravated [Not Recovered/Not Resolved]
  - Drug ineffective [Unknown]
